FAERS Safety Report 23340875 (Version 1)
Quarter: 2023Q4

REPORT INFORMATION
  Report Type: Spontaneous
  Country: NZ (occurrence: NZ)
  Receive Date: 20231227
  Receipt Date: 20231227
  Transmission Date: 20240109
  Serious: Yes (Life-Threatening, Hospitalization)
  Sender: FDA-Public Use
  Company Number: NZ-ALKEM LABORATORIES LIMITED-NZ-ALKEM-2023-16253

PATIENT
  Age: 23 Year
  Sex: Female

DRUGS (4)
  1. LAMOTRIGINE [Suspect]
     Active Substance: LAMOTRIGINE
     Indication: Epilepsy
     Dosage: UNK
     Route: 065
  2. LAMOTRIGINE [Suspect]
     Active Substance: LAMOTRIGINE
     Dosage: 100 MILLIGRAM, BID
     Route: 065
  3. LEVETIRACETAM [Concomitant]
     Active Substance: LEVETIRACETAM
     Indication: Epilepsy
     Dosage: 1 GRAM, BID
     Route: 065
  4. LEVETIRACETAM [Concomitant]
     Active Substance: LEVETIRACETAM
     Dosage: 1.5 GRAM, BID
     Route: 065

REACTIONS (1)
  - Pustular psoriasis [Recovered/Resolved with Sequelae]
